FAERS Safety Report 5199434-X (Version None)
Quarter: 2006Q4

REPORT INFORMATION
  Report Type: 
  Country: None (occurrence: None)
  Receive Date: 20061229
  Receipt Date: 20061218
  Transmission Date: 20070319
  Serious: Yes (Life-Threatening, Hospitalization, Other)
  Sender: FDA-Public Use
  Company Number: TRP_0151_2005

PATIENT
  Age: 45 Year
  Sex: Female

DRUGS (13)
  1. RIBASPHERE [Suspect]
     Indication: HEPATITIS C
     Dosage: 1000 MG QDAY PO
     Route: 048
     Dates: start: 20050128, end: 20050511
  2. PEG-INTRON [Suspect]
     Indication: HEPATITIS C
     Dosage: 120 MCG QWK SC
     Route: 058
     Dates: start: 20050128, end: 20050511
  3. ALPRAZOLAM [Concomitant]
  4. LASIX [Concomitant]
  5. METOCLOPRAMIDE HYDROCHLORIDE [Concomitant]
  6. NEXIUM [Concomitant]
  7. PREMARIN [Concomitant]
  8. PROPRANOLOL HYDROCHLORIDE [Concomitant]
  9. ZELNORM [Concomitant]
  10. VANCOMYCIN [Concomitant]
  11. PROTONIX [Concomitant]
  12. LEVAQUIN [Concomitant]
  13. AZACTAM [Concomitant]

REACTIONS (12)
  - ALANINE AMINOTRANSFERASE INCREASED [None]
  - ANAEMIA [None]
  - BLOOD ALBUMIN DECREASED [None]
  - BONE MARROW FAILURE [None]
  - HAEMOLYSIS [None]
  - MALAISE [None]
  - MEAN CELL VOLUME INCREASED [None]
  - NEUTROPHIL COUNT DECREASED [None]
  - PNEUMONIA [None]
  - RESPIRATORY DISTRESS [None]
  - VOCAL CORD PARALYSIS [None]
  - WHITE BLOOD CELL COUNT DECREASED [None]
